FAERS Safety Report 21382285 (Version 1)
Quarter: 2022Q3

REPORT INFORMATION
  Report Type: Spontaneous
  Country: US (occurrence: US)
  Receive Date: 20220927
  Receipt Date: 20220927
  Transmission Date: 20221027
  Serious: No
  Sender: FDA-Public Use
  Company Number: US-C B Fleet Co Inc-202202-US-000686

PATIENT
  Sex: Female

DRUGS (2)
  1. MONISTAT TIOCONAZOLE 1 [Suspect]
     Active Substance: TIOCONAZOLE
     Indication: Fungal infection
     Dosage: ONCE
     Route: 067
  2. MONISTAT 1 COMBINATION PACK [Suspect]
     Active Substance: MICONAZOLE NITRATE
     Indication: Fungal infection
     Dosage: UNKNOWN
     Route: 067
     Dates: start: 20220221

REACTIONS (6)
  - Abdominal pain [Not Recovered/Not Resolved]
  - Vaginal haemorrhage [Not Recovered/Not Resolved]
  - Influenza like illness [Not Recovered/Not Resolved]
  - Chills [Recovered/Resolved]
  - Vaginal erosion [Not Recovered/Not Resolved]
  - Intentional product misuse [None]
